FAERS Safety Report 9455197 (Version 1)
Quarter: 2013Q3

REPORT INFORMATION
  Report Type: Spontaneous
  Country: US (occurrence: US)
  Receive Date: 20130813
  Receipt Date: 20130813
  Transmission Date: 20140515
  Serious: No
  Sender: FDA-Public Use
  Company Number: US-FOUGERA-2012FO001260

PATIENT
  Age: 70 Year
  Sex: Male

DRUGS (5)
  1. LIDOCAINE [Suspect]
     Indication: PRURITUS
     Route: 061
     Dates: start: 20120718, end: 20120724
  2. LIDOCAINE [Suspect]
     Indication: PAIN
  3. GLYBURIDE [Concomitant]
     Indication: DIABETES MELLITUS
     Route: 048
  4. LANTUS [Concomitant]
     Indication: DIABETES MELLITUS
     Route: 058
  5. MULTI-VITAMIN WITH MINERALS [Concomitant]
     Indication: PRODUCT USED FOR UNKNOWN INDICATION

REACTIONS (5)
  - Condition aggravated [Unknown]
  - Off label use [Recovered/Resolved]
  - Application site erythema [Not Recovered/Not Resolved]
  - Application site erosion [Not Recovered/Not Resolved]
  - Application site pain [Not Recovered/Not Resolved]
